FAERS Safety Report 23544124 (Version 5)
Quarter: 2024Q2

REPORT INFORMATION
  Report Type: Spontaneous
  Country: CA (occurrence: CA)
  Receive Date: 20240220
  Receipt Date: 20240606
  Transmission Date: 20240716
  Serious: Yes (Death, Hospitalization, Other)
  Sender: FDA-Public Use
  Company Number: CA-PFIZER INC-202400041037

PATIENT
  Age: 80 Year
  Sex: Male

DRUGS (1)
  1. ABRILADA [Suspect]
     Active Substance: ADALIMUMAB-AFZB
     Indication: Crohn^s disease
     Dosage: 1 DF, WEEK0:160MG, WEEK2:80MG THEN 40 MG EVERY OTHER WEEK (PREFILLED PEN)
     Route: 058
     Dates: start: 20240105, end: 20240105

REACTIONS (6)
  - Death [Fatal]
  - Pneumonia [Not Recovered/Not Resolved]
  - Gastrointestinal infection [Unknown]
  - Clostridium difficile colitis [Unknown]
  - Epistaxis [Unknown]
  - Staphylococcal infection [Unknown]

NARRATIVE: CASE EVENT DATE: 20240101
